FAERS Safety Report 10648565 (Version 1)
Quarter: 2014Q4

REPORT INFORMATION
  Report Type: Spontaneous
  Country: US (occurrence: None)
  Receive Date: 20141211
  Receipt Date: 20141211
  Transmission Date: 20150529
  Serious: No
  Sender: FDA-Public Use
  Company Number: None

PATIENT
  Age: 60 Year
  Sex: Female
  Weight: 59.3 kg

DRUGS (1)
  1. ALFA 2 INTERFERON 2B [Suspect]
     Active Substance: INTERFERON ALFA-2B
     Dosage: 640  MU
     Dates: end: 20140207

REACTIONS (1)
  - Blood phosphorus decreased [None]

NARRATIVE: CASE EVENT DATE: 20140210
